FAERS Safety Report 17314198 (Version 1)
Quarter: 2020Q1

REPORT INFORMATION
  Report Type: Spontaneous
  Country: GB (occurrence: GB)
  Receive Date: 20200124
  Receipt Date: 20200124
  Transmission Date: 20200409
  Serious: Yes (Other)
  Sender: FDA-Public Use
  Company Number: GB-ACCORD-170597

PATIENT
  Age: 75 Year
  Sex: Male
  Weight: 92 kg

DRUGS (3)
  1. ALLOPURINOL. [Suspect]
     Active Substance: ALLOPURINOL
     Indication: PRODUCT USED FOR UNKNOWN INDICATION
     Dosage: AFTER BEING GOUT FREE FOR ONE MONTH START TAKIN...
     Dates: start: 20190505
  2. OMEPRAZOLE. [Concomitant]
     Active Substance: OMEPRAZOLE
     Dates: start: 20181122
  3. NAPROXEN. [Concomitant]
     Active Substance: NAPROXEN
     Dosage: DURING ACUTE ATTACKS
     Dates: start: 20190429

REACTIONS (2)
  - Musculoskeletal discomfort [Recovering/Resolving]
  - Musculoskeletal stiffness [Unknown]

NARRATIVE: CASE EVENT DATE: 20200106
